FAERS Safety Report 19462729 (Version 1)
Quarter: 2021Q2

REPORT INFORMATION
  Report Type: Spontaneous
  Country: PT (occurrence: PT)
  Receive Date: 20210625
  Receipt Date: 20210625
  Transmission Date: 20210717
  Serious: Yes (Other)
  Sender: FDA-Public Use
  Company Number: PT-BAYER-2021-161693

PATIENT
  Age: 60 Year
  Sex: Male

DRUGS (1)
  1. CIPROXINA 400/200 MG/ML [Suspect]
     Active Substance: CIPROFLOXACIN
     Dosage: 400 MG

REACTIONS (1)
  - Pathogen resistance [None]
